FAERS Safety Report 6492530-6 (Version None)
Quarter: 2009Q4

REPORT INFORMATION
  Report Type: 
  Country: None (occurrence: None)
  Receive Date: 20091214
  Receipt Date: 20091201
  Transmission Date: 20100525
  Serious: Yes (Other)
  Sender: FDA-Public Use
  Company Number: JP-ASTRAZENECA-2009SE29062

PATIENT
  Age: 92 Year
  Sex: Male

DRUGS (9)
  1. MEROPEN [Suspect]
     Indication: UROSEPSIS
     Route: 042
     Dates: start: 20091105, end: 20091109
  2. ADONA [Concomitant]
  3. HEPARIN SODIUM [Concomitant]
  4. DIOVAN [Concomitant]
     Route: 048
  5. SALOBEL [Concomitant]
     Route: 048
  6. NITOROL R [Concomitant]
     Route: 048
  7. SIGMART [Concomitant]
  8. THYRADIN [Concomitant]
     Route: 048
  9. LASIX [Concomitant]

REACTIONS (1)
  - DEPRESSED LEVEL OF CONSCIOUSNESS [None]
